FAERS Safety Report 5725697-5 (Version None)
Quarter: 2008Q2

REPORT INFORMATION
  Report Type: 
  Country: None (occurrence: None)
  Receive Date: 20080501
  Receipt Date: 20080428
  Transmission Date: 20081010
  Serious: Yes (Hospitalization, Other)
  Sender: FDA-Public Use
  Company Number: FR-ABBOTT-08P-056-0449428-00

PATIENT
  Sex: Female

DRUGS (12)
  1. KALETRA [Suspect]
     Indication: HIV INFECTION
     Route: 048
     Dates: start: 20060401, end: 20071113
  2. KALETRA [Suspect]
     Dates: start: 20071124
  3. RIFAMPICIN [Interacting]
     Indication: TUBERCULOSIS
     Route: 048
     Dates: start: 20071109, end: 20071113
  4. RIFAMPICIN [Interacting]
     Dates: start: 20071116, end: 20071120
  5. EMTRICITABINE W/TENOFOVIR [Suspect]
     Indication: HIV INFECTION
     Route: 048
     Dates: start: 20060401, end: 20071113
  6. BACTRIM [Concomitant]
     Indication: HIV INFECTION
     Route: 048
     Dates: start: 20060401
  7. FOLIC ACID [Concomitant]
     Indication: HIV INFECTION
     Route: 048
     Dates: start: 20060401
  8. IRON [Concomitant]
     Indication: HIV INFECTION
     Route: 048
     Dates: start: 20060401
  9. ETHAMBUTOL HYDROCHLORIDE [Concomitant]
     Indication: TUBERCULOSIS
     Route: 048
     Dates: start: 20071109, end: 20071127
  10. ISONIAZID [Concomitant]
     Indication: TUBERCULOSIS
     Route: 048
     Dates: start: 20071109, end: 20071127
  11. PYRAZINAMIDE [Concomitant]
     Indication: TUBERCULOSIS
     Route: 048
     Dates: start: 20071109, end: 20071127
  12. RIFABUTIN [Concomitant]
     Indication: TUBERCULOSIS
     Route: 048
     Dates: start: 20071121, end: 20071127

REACTIONS (13)
  - ALANINE AMINOTRANSFERASE INCREASED [None]
  - ANOREXIA [None]
  - ARTHRALGIA [None]
  - ASPARTATE AMINOTRANSFERASE INCREASED [None]
  - ASTHENIA [None]
  - DRUG INTERACTION [None]
  - ENCEPHALITIS [None]
  - HEPATOTOXICITY [None]
  - MENINGITIS [None]
  - MENTAL DISORDER [None]
  - MYALGIA [None]
  - RASH MACULO-PAPULAR [None]
  - VOMITING [None]
